FAERS Safety Report 7711530-9 (Version None)
Quarter: 2011Q3

REPORT INFORMATION
  Report Type: 
  Country: None (occurrence: None)
  Receive Date: 20110826
  Receipt Date: 20110816
  Transmission Date: 20111222
  Serious: Yes (Disabling, Other)
  Sender: FDA-Public Use
  Company Number: JP-JNJFOC-20110809443

PATIENT
  Age: 86 Year
  Sex: Female

DRUGS (4)
  1. FENTANYL CITRATE [Suspect]
     Indication: PAIN
     Route: 062
     Dates: start: 20110715, end: 20110723
  2. ROZEREM [Suspect]
     Indication: INSOMNIA
     Route: 048
  3. MORPHINE HCL ELIXIR [Suspect]
     Indication: PAIN
     Route: 048
  4. HALCION [Suspect]
     Indication: INSOMNIA
     Route: 048

REACTIONS (2)
  - OVERDOSE [None]
  - DECUBITUS ULCER [None]
